FAERS Safety Report 7445545-5 (Version None)
Quarter: 2011Q2

REPORT INFORMATION
  Report Type: 
  Country: None (occurrence: None)
  Receive Date: 20110420
  Receipt Date: 20110407
  Transmission Date: 20111010
  Serious: Yes (Hospitalization)
  Sender: FDA-Public Use
  Company Number: 030748

PATIENT
  Sex: Male

DRUGS (3)
  1. ZYPREXA [Concomitant]
  2. NEUPRO [Suspect]
     Indication: PARKINSON'S DISEASE
     Dosage: 6 MG QD, 3-4 MONTHS AGO;
  3. STALEVO 100 [Concomitant]

REACTIONS (1)
  - MYOSITIS [None]
